FAERS Safety Report 5134364-0 (Version None)
Quarter: 2006Q4

REPORT INFORMATION
  Report Type: 
  Country: None (occurrence: None)
  Receive Date: 20061025
  Receipt Date: 20061016
  Transmission Date: 20070319
  Serious: Yes (Hospitalization)
  Sender: FDA-Public Use
  Company Number: US-JNJFOC-20061003797

PATIENT
  Sex: Male
  Weight: 101.15 kg

DRUGS (8)
  1. DOXIL [Suspect]
     Indication: SARCOMA
     Route: 042
  2. DOXIL [Suspect]
     Indication: MYCOSIS FUNGOIDES
     Route: 042
  3. PROZAC [Concomitant]
     Indication: DEPRESSION
  4. ANALAPRIL [Concomitant]
  5. DILTIAZEM HCL [Concomitant]
  6. METOPROLOL [Concomitant]
  7. HALOPERIDOL [Concomitant]
  8. ZYPREXA [Concomitant]
     Indication: SCHIZOPHRENIA

REACTIONS (6)
  - DELIRIUM [None]
  - HYPERCALCAEMIA [None]
  - HYPERSENSITIVITY [None]
  - LETHARGY [None]
  - RESPIRATORY DISTRESS [None]
  - TACHYCARDIA [None]
